FAERS Safety Report 19043680 (Version 1)
Quarter: 2021Q1

REPORT INFORMATION
  Report Type: Spontaneous
  Country: US (occurrence: US)
  Receive Date: 20210322
  Receipt Date: 20210322
  Transmission Date: 20210420
  Serious: No
  Sender: FDA-Public Use
  Company Number: US-GALDERMA-US2020051863

PATIENT
  Age: 73 Year
  Sex: Female

DRUGS (6)
  1. AVEENO RADIANT GLOW CREAM [Concomitant]
     Indication: PRODUCT USED FOR UNKNOWN INDICATION
     Route: 065
  2. DIFFERIN DARK SPOT CORRECTING SERUM [Suspect]
     Active Substance: HYDROQUINONE
     Indication: SOLAR LENTIGO
     Route: 065
     Dates: start: 20201116, end: 20201212
  3. DIFFERIN GEL [Suspect]
     Active Substance: ADAPALENE
     Indication: SKIN WRINKLING
     Dosage: 0.1%
     Route: 061
     Dates: start: 202009, end: 202009
  4. AVEENO MOISTURIZING BODY CREAM [Concomitant]
     Indication: PRODUCT USED FOR UNKNOWN INDICATION
     Route: 065
  5. ZYRTEC [Concomitant]
     Active Substance: CETIRIZINE HYDROCHLORIDE
     Indication: SEASONAL ALLERGY
     Route: 065
  6. RETIN?A [Concomitant]
     Active Substance: TRETINOIN
     Indication: PRODUCT USED FOR UNKNOWN INDICATION
     Route: 065

REACTIONS (3)
  - Product use in unapproved indication [Recovered/Resolved]
  - Drug ineffective [Unknown]
  - Product odour abnormal [Recovered/Resolved]

NARRATIVE: CASE EVENT DATE: 2020
